FAERS Safety Report 19882393 (Version 2)
Quarter: 2021Q4

REPORT INFORMATION
  Report Type: Report from Study
  Country: None (occurrence: US)
  Receive Date: 20210925
  Receipt Date: 20211004
  Transmission Date: 20220303
  Serious: Yes (Hospitalization, Other)
  Sender: FDA-Public Use
  Company Number: US-ABBVIE-21K-163-4093129-00

PATIENT
  Age: 59 Year
  Sex: Female
  Weight: 92.16 kg

DRUGS (20)
  1. CREON [Suspect]
     Active Substance: PANCRELIPASE AMYLASE\PANCRELIPASE LIPASE\PANCRELIPASE PROTEASE
     Indication: Pancreatic failure
     Dosage: 2-4 CAPSULES WITH EVERY MEAL AND 2 CAPSULES WITH EVERY SNACK
     Route: 048
     Dates: start: 201703
  2. CREON [Suspect]
     Active Substance: PANCRELIPASE AMYLASE\PANCRELIPASE LIPASE\PANCRELIPASE PROTEASE
     Dosage: 9 TO 10 CAPSULES A DAY WITH MEALS
     Route: 048
     Dates: start: 201904, end: 20210226
  3. CREON [Suspect]
     Active Substance: PANCRELIPASE AMYLASE\PANCRELIPASE LIPASE\PANCRELIPASE PROTEASE
     Dosage: 9 TO 10 CAPSULES A DAY WITH MEALS
     Route: 048
     Dates: start: 20210227
  4. METHOTREXATE [Suspect]
     Active Substance: METHOTREXATE
     Indication: Rheumatoid arthritis
     Route: 050
  5. HUMALOG [Concomitant]
     Active Substance: INSULIN LISPRO
     Indication: Type 1 diabetes mellitus
  6. VITAMIN D [Concomitant]
     Active Substance: VITAMIN D NOS
     Indication: Bone disorder
  7. IRON [Concomitant]
     Active Substance: IRON
     Indication: Supplementation therapy
  8. QUERCETIN [Concomitant]
     Active Substance: QUERCETIN
     Indication: Drug hypersensitivity
  9. ALPRAZOLAM [Concomitant]
     Active Substance: ALPRAZOLAM
     Indication: Fear of disease
  10. MIDODRINE [Concomitant]
     Active Substance: MIDODRINE
     Indication: Blood pressure decreased
  11. MIDODRINE [Concomitant]
     Active Substance: MIDODRINE
     Indication: Fear of disease
  12. FOSAMAX [Concomitant]
     Active Substance: ALENDRONATE SODIUM
     Indication: Bone disorder
     Dosage: IV
  13. COVID-19 VACCINE [Concomitant]
     Indication: COVID-19 immunisation
     Dosage: JOHNSON AND JOHNSON
     Route: 030
     Dates: start: 20210617, end: 20210617
  14. CLOPIDOGREL [Concomitant]
     Active Substance: CLOPIDOGREL BISULFATE
     Indication: Coronary artery disease
  15. DILTIAZEM [Concomitant]
     Active Substance: DILTIAZEM
     Indication: Blood pressure abnormal
  16. FOLIC ACID [Concomitant]
     Active Substance: FOLIC ACID
     Indication: Stomatitis
  17. TYLENOL [Concomitant]
     Active Substance: ACETAMINOPHEN
     Indication: Arthralgia
  18. ASPIRIN [Concomitant]
     Active Substance: ASPIRIN
     Indication: Coronary artery disease
  19. FUROSEMIDE [Concomitant]
     Active Substance: FUROSEMIDE
     Indication: Peripheral swelling
  20. GABAPENTIN [Concomitant]
     Active Substance: GABAPENTIN
     Indication: Pain

REACTIONS (23)
  - Wrist fracture [Recovered/Resolved]
  - Blister infected [Unknown]
  - Fall [Recovered/Resolved]
  - Fall [Unknown]
  - Wrist fracture [Recovered/Resolved]
  - Foot fracture [Recovered/Resolved]
  - Fracture blisters [Recovered/Resolved]
  - Pancreatic failure [Recovered/Resolved]
  - Peripheral swelling [Unknown]
  - Pain in extremity [Recovered/Resolved]
  - Wound infection [Recovered/Resolved]
  - Joint dislocation [Recovered/Resolved]
  - Tibia fracture [Not Recovered/Not Resolved]
  - Vitamin D decreased [Unknown]
  - Malabsorption [Unknown]
  - Drug intolerance [Unknown]
  - Adverse drug reaction [Unknown]
  - Joint noise [Unknown]
  - Foot fracture [Unknown]
  - Autonomic nervous system imbalance [Not Recovered/Not Resolved]
  - Autonomic neuropathy [Not Recovered/Not Resolved]
  - Blood pressure decreased [Not Recovered/Not Resolved]
  - Stomatitis [Recovered/Resolved]

NARRATIVE: CASE EVENT DATE: 20190101
